FAERS Safety Report 7925557 (Version 2)
Quarter: 2014Q2

REPORT INFORMATION
  Report Type: Spontaneous
  Country: US (occurrence: US)
  Receive Date: 20110502
  Receipt Date: 20140409
  Transmission Date: 20141212
  Serious: Yes (Other)
  Sender: FDA-Public Use
  Company Number: US-BAYER-2010-002157

PATIENT
  Age: 27 Year
  Sex: Female
  Weight: 52.15 kg

DRUGS (9)
  1. YASMIN [Suspect]
     Indication: CONTRACEPTION
     Dosage: UNK
     Dates: start: 2003, end: 2009
  2. YAZ [Suspect]
     Indication: CONTRACEPTION
     Dosage: UNK
     Dates: start: 2003, end: 2009
  3. ORTHO EVRA [Concomitant]
     Dosage: UNK
     Dates: start: 200507, end: 200603
  4. PAXIL [Concomitant]
     Route: 048
  5. TYLENOL PM [Concomitant]
     Route: 048
  6. HYDROCODONE W/ACETAMINOPHEN [Concomitant]
     Route: 048
  7. KEFLEX [Concomitant]
     Dosage: 500 MG, UNK
     Route: 048
     Dates: start: 20090730
  8. XANAX [Concomitant]
     Dosage: 0.5 MG, UNK
     Dates: start: 20090810
  9. TYLENOL WITH CODEINE [Concomitant]
     Dosage: UNK
     Route: 048
     Dates: start: 20090730

REACTIONS (9)
  - Gallbladder injury [None]
  - Cholecystitis chronic [None]
  - Amnesia [None]
  - Headache [None]
  - Mood swings [None]
  - Depression [None]
  - Dyspnoea [None]
  - Insomnia [None]
  - Dizziness [None]
